FAERS Safety Report 23128972 (Version 1)
Quarter: 2023Q4

REPORT INFORMATION
  Report Type: Spontaneous
  Country: ZA (occurrence: None)
  Receive Date: 20231031
  Receipt Date: 20231031
  Transmission Date: 20240109
  Serious: Yes (Hospitalization)
  Sender: FDA-Public Use
  Company Number: 2023A240993

PATIENT
  Age: 44 Year
  Sex: Female

DRUGS (3)
  1. BUDESONIDE\FORMOTEROL [Suspect]
     Active Substance: BUDESONIDE\FORMOTEROL
     Indication: Asthma
     Dosage: 160 UG,UNKNOWN160.0UG UNKNOWN
     Route: 055
  2. BISOPROLOL [Concomitant]
     Active Substance: BISOPROLOL\BISOPROLOL FUMARATE
     Indication: Hypertension
     Dosage: 2.5MG UNKNOWN
     Route: 048
  3. THEOPHYLLINE ANH [Concomitant]
     Indication: Asthma
     Dosage: 300.0MG UNKNOWN
     Route: 048

REACTIONS (1)
  - Asthma [Unknown]
